FAERS Safety Report 6186802-2 (Version None)
Quarter: 2009Q2

REPORT INFORMATION
  Report Type: 
  Country: None (occurrence: None)
  Receive Date: 20090508
  Receipt Date: 20090508
  Transmission Date: 20091009
  Serious: Yes (Hospitalization)
  Sender: FDA-Public Use
  Company Number: None

PATIENT
  Sex: Male
  Weight: 85 kg

DRUGS (2)
  1. CYTARABINE [Suspect]
     Dosage: 1505 MG
     Dates: end: 20090116
  2. DAUNORUBICIN HCL [Suspect]
     Dosage: 387 MG
     Dates: end: 20090112

REACTIONS (4)
  - CARDIAC FAILURE ACUTE [None]
  - HEPATIC FAILURE [None]
  - PNEUMONIA [None]
  - RENAL FAILURE ACUTE [None]
